FAERS Safety Report 9153675 (Version 1)
Quarter: 2013Q1

REPORT INFORMATION
  Report Type: Spontaneous
  Country: US (occurrence: US)
  Receive Date: 20130311
  Receipt Date: 20130311
  Transmission Date: 20140127
  Serious: Yes (Death)
  Sender: FDA-Public Use
  Company Number: PHEH2013US005620

PATIENT
  Age: 91 Year
  Sex: Male

DRUGS (1)
  1. GLEEVEC [Suspect]
     Indication: CONNECTIVE TISSUE NEOPLASM
     Dosage: UNK UKN, UNK
     Route: 048
     Dates: start: 20121214

REACTIONS (1)
  - Death [Fatal]
